FAERS Safety Report 18912905 (Version 2)
Quarter: 2021Q1

REPORT INFORMATION
  Report Type: Spontaneous
  Country: PT (occurrence: PT)
  Receive Date: 20210219
  Receipt Date: 20210330
  Transmission Date: 20210420
  Serious: Yes (Disabling, Other)
  Sender: FDA-Public Use
  Company Number: PT-SA-2021SA057161

PATIENT
  Age: 21 Year
  Sex: Female

DRUGS (7)
  1. FLUTICASONE. [Concomitant]
     Active Substance: FLUTICASONE
     Dosage: UNK
  2. DEFLAZACORT [Concomitant]
     Active Substance: DEFLAZACORT
     Dosage: UNK
  3. FORMOTEROL [Concomitant]
     Active Substance: FORMOTEROL
     Dosage: UNK
  4. IVABRADINE [Concomitant]
     Active Substance: IVABRADINE
     Dosage: UNK
  5. TIOTROPIO [Concomitant]
     Active Substance: TIOTROPIUM BROMIDE
     Dosage: UNK
  6. MONTELUCAST [Concomitant]
     Active Substance: MONTELUKAST SODIUM
     Dosage: UNK
  7. DUPILUMAB [Suspect]
     Active Substance: DUPILUMAB
     Indication: ASTHMA
     Dosage: 300 MG
     Route: 058
     Dates: start: 202001, end: 2021

REACTIONS (5)
  - Papilloedema [Unknown]
  - Nervous system disorder [Unknown]
  - CSF pressure increased [Unknown]
  - Headache [Unknown]
  - Intracranial pressure increased [Not Recovered/Not Resolved]

NARRATIVE: CASE EVENT DATE: 202101
